FAERS Safety Report 4747792-X (Version None)
Quarter: 2005Q3

REPORT INFORMATION
  Report Type: 
  Country: None (occurrence: None)
  Receive Date: 20050816
  Receipt Date: 20050726
  Transmission Date: 20060218
  Serious: Yes (Hospitalization)
  Sender: FDA-Public Use
  Company Number: 02100-USA-02-0057

PATIENT
  Age: 72 Year
  Sex: Male

DRUGS (13)
  1. PLETAL [Suspect]
     Indication: INTERMITTENT CLAUDICATION
     Dosage: 100 MG BID ORAL
     Route: 048
     Dates: start: 20011221, end: 20020320
  2. PLETAL [Suspect]
     Indication: INTERMITTENT CLAUDICATION
     Dosage: 50 MG BID ORAL
     Route: 048
     Dates: start: 20011221, end: 20020320
  3. QUINAPRIL [Concomitant]
  4. SIMVASTATIN [Concomitant]
  5. DIPYRIDAMOLE [Concomitant]
  6. ASPIRIN [Concomitant]
  7. ISOSORBIDE MONONITRATE [Concomitant]
  8. YOHIMBINE [Concomitant]
  9. ACETAMINOPHEN AND HYDROCODONE BITARTRATE [Concomitant]
  10. GLYBURIDE [Concomitant]
  11. ROBITUSSIN [Concomitant]
  12. FUROSEMIDE [Concomitant]
  13. ALBUTEROL [Concomitant]

REACTIONS (3)
  - CARDIAC FAILURE CONGESTIVE [None]
  - CHEST PAIN [None]
  - ELECTROCARDIOGRAM CHANGE [None]
